FAERS Safety Report 7408473-7 (Version None)
Quarter: 2011Q2

REPORT INFORMATION
  Report Type: 
  Country: None (occurrence: None)
  Receive Date: 20110401
  Receipt Date: 20110325
  Transmission Date: 20111010
  Serious: No
  Sender: FDA-Public Use
  Company Number: 2011-00134

PATIENT
  Age: 74 Year
  Sex: Female
  Weight: 72.5755 kg

DRUGS (4)
  1. REMERON [Concomitant]
  2. CO Q-10 [Concomitant]
  3. MULTI-VITAMIN [Concomitant]
  4. ZICAM  COLD REMEDY ORAL MIST [Suspect]
     Dosage: 1 DOSE
     Dates: start: 20110324, end: 20110324

REACTIONS (1)
  - AGEUSIA [None]
